FAERS Safety Report 6297577-0 (Version None)
Quarter: 2009Q3

REPORT INFORMATION
  Report Type: 
  Country: None (occurrence: None)
  Receive Date: 20090805
  Receipt Date: 20090729
  Transmission Date: 20100115
  Serious: Yes (Hospitalization, Other)
  Sender: FDA-Public Use
  Company Number: NL-BAYER-200714798GDS

PATIENT
  Age: 72 Year
  Sex: Male

DRUGS (9)
  1. NEXAVAR [Suspect]
     Indication: DRUG USE FOR UNKNOWN INDICATION
     Dosage: TOTAL DAILY DOSE: 200 MG
     Route: 048
     Dates: start: 20090101, end: 20090101
  2. NEXAVAR [Suspect]
     Dosage: 1DD1 + 1DD2 TABL/24 HRS
     Route: 048
     Dates: start: 20090101
  3. NEXAVAR [Suspect]
     Dosage: TOTAL DAILY DOSE: 800 MG
     Route: 048
     Dates: start: 20090101, end: 20090101
  4. NEXAVAR [Suspect]
     Dosage: TOTAL DAILY DOSE: 600 MG
     Route: 048
     Dates: start: 20090301, end: 20090101
  5. NEXAVAR [Suspect]
     Dosage: TOTAL DAILY DOSE: 600 MG
     Route: 048
     Dates: start: 20070730, end: 20090301
  6. IMODIUM [Concomitant]
     Indication: DIARRHOEA
     Route: 065
  7. OMEPRAZOL [Concomitant]
     Indication: PROPHYLAXIS AGAINST GASTROINTESTINAL ULCER
  8. NASUMEL [Concomitant]
     Indication: PROPHYLAXIS
  9. VIDISIC [Concomitant]

REACTIONS (15)
  - ARRHYTHMIA [None]
  - BLOOD CALCIUM DECREASED [None]
  - BLOOD PRESSURE INCREASED [None]
  - BLOOD SODIUM INCREASED [None]
  - CONSTIPATION [None]
  - DIARRHOEA [None]
  - DYSPHONIA [None]
  - FATIGUE [None]
  - HYPERTENSION [None]
  - MALAISE [None]
  - METASTASES TO PANCREAS [None]
  - MYALGIA [None]
  - PANCREATIC ENLARGEMENT [None]
  - RIB FRACTURE [None]
  - WEIGHT DECREASED [None]
